FAERS Safety Report 6218233-0 (Version None)
Quarter: 2009Q2

REPORT INFORMATION
  Report Type: 
  Country: None (occurrence: None)
  Receive Date: 20090604
  Receipt Date: 20090604
  Transmission Date: 20091009
  Serious: Yes (Other)
  Sender: FDA-Public Use
  Company Number: None

PATIENT
  Age: 55 Year
  Sex: Female
  Weight: 117.9352 kg

DRUGS (1)
  1. DESOXIMETASONE [Suspect]
     Indication: POIKILODERMA
     Dosage: SMALL AMT 2 TIMES DAILY TOP
     Route: 061
     Dates: start: 20090528, end: 20090530

REACTIONS (4)
  - CONDITION AGGRAVATED [None]
  - EYE SWELLING [None]
  - RASH [None]
  - SWOLLEN TONGUE [None]
